FAERS Safety Report 6918201-7 (Version None)
Quarter: 2010Q3

REPORT INFORMATION
  Report Type: 
  Country: None (occurrence: None)
  Receive Date: 20100806
  Receipt Date: 20100723
  Transmission Date: 20110219
  Serious: Yes (Hospitalization)
  Sender: FDA-Public Use
  Company Number: 2010SP002087

PATIENT
  Age: 65 Year
  Sex: Female
  Weight: 115 kg

DRUGS (10)
  1. ARFORMOTEROL TARTRATE [Suspect]
     Indication: CHRONIC OBSTRUCTIVE PULMONARY DISEASE
     Dosage: BLINDED ARFORMOTEROL
     Dates: start: 20100528, end: 20100719
  2. ARFORMOTEROL TARTRATE [Suspect]
     Indication: CHRONIC OBSTRUCTIVE PULMONARY DISEASE
     Dosage: BLINDED ARFORMOTEROL
     Dates: start: 20100721
  3. WARFARIN [Concomitant]
  4. LISINOPRIL [Concomitant]
  5. HYDROCHLOROTHIAZIDE [Concomitant]
  6. OXYGEN [Concomitant]
  7. INDOMETHACIN SODIUM [Concomitant]
  8. HYDROCODONE BITARTRATE [Concomitant]
  9. ACETAMINOPHEN [Concomitant]
  10. INFLUENZA VACCINE [Concomitant]

REACTIONS (4)
  - ABDOMINAL PAIN [None]
  - ILEUS [None]
  - SMALL INTESTINAL OBSTRUCTION [None]
  - VOMITING [None]
